FAERS Safety Report 6704281-0 (Version None)
Quarter: 2010Q2

REPORT INFORMATION
  Report Type: 
  Country: None (occurrence: None)
  Receive Date: 20100430
  Receipt Date: 20100330
  Transmission Date: 20101027
  Serious: No
  Sender: FDA-Public Use
  Company Number: US-BAYER-201018494NA

PATIENT
  Age: 62 Year
  Sex: Male
  Weight: 95 kg

DRUGS (1)
  1. ULTRAVIST 240 [Suspect]
     Indication: UROGRAM
     Dosage: AS USED: 200 ML  UNIT DOSE: 200 ML
     Route: 042
     Dates: start: 20100330, end: 20100330

REACTIONS (1)
  - NASAL CONGESTION [None]
